FAERS Safety Report 6049131-3 (Version None)
Quarter: 2009Q1

REPORT INFORMATION
  Report Type: 
  Country: None (occurrence: None)
  Receive Date: 20090123
  Receipt Date: 20080125
  Transmission Date: 20090719
  Serious: No
  Sender: FDA-Public Use
  Company Number: US-ABBOTT-08P-163-0435339-00

PATIENT
  Sex: Female

DRUGS (2)
  1. DEPACON [Suspect]
     Indication: MIGRAINE
     Route: 042
     Dates: start: 20080123
  2. DEPACON [Suspect]
     Route: 042
     Dates: start: 20070701

REACTIONS (1)
  - DRUG INEFFECTIVE [None]
